FAERS Safety Report 6379982-7 (Version None)
Quarter: 2009Q3

REPORT INFORMATION
  Report Type: 
  Country: None (occurrence: None)
  Receive Date: 20090928
  Receipt Date: 20090919
  Transmission Date: 20100115
  Serious: No
  Sender: FDA-Public Use
  Company Number: US-B.I. PHARMACEUTICALS,INC./RIDGEFIELD-2009-BP-11084BP

PATIENT
  Age: 39 Year
  Sex: Female

DRUGS (2)
  1. ZANTAC 150 [Suspect]
     Indication: GASTROOESOPHAGEAL REFLUX DISEASE
     Dosage: 150 MG
     Route: 048
     Dates: start: 20090918
  2. TOPROL-XL [Concomitant]
     Indication: ARRHYTHMIA
     Dosage: 50 MG
     Route: 048
     Dates: start: 19990101

REACTIONS (2)
  - DIZZINESS [None]
  - PALPITATIONS [None]
